FAERS Safety Report 13030543 (Version 1)
Quarter: 2016Q4

REPORT INFORMATION
  Report Type: Spontaneous
  Country: DE (occurrence: DE)
  Receive Date: 20161215
  Receipt Date: 20161215
  Transmission Date: 20170207
  Serious: Yes (Other)
  Sender: FDA-Public Use
  Company Number: DE-ALLERGAN-1680540US

PATIENT
  Sex: Female

DRUGS (1)
  1. CITALOPRAM HYDROBROMIDE - BP [Suspect]
     Active Substance: CITALOPRAM HYDROBROMIDE
     Indication: EXPOSURE VIA PARTNER
     Dosage: UNK
     Route: 050
     Dates: start: 201108, end: 201510

REACTIONS (3)
  - Foetal chromosome abnormality [Unknown]
  - Abortion spontaneous [Unknown]
  - Exposure during pregnancy [Unknown]
